FAERS Safety Report 20763100 (Version 3)
Quarter: 2022Q2

REPORT INFORMATION
  Report Type: Spontaneous
  Country: JP (occurrence: JP)
  Receive Date: 20220428
  Receipt Date: 20220526
  Transmission Date: 20220721
  Serious: No
  Sender: FDA-Public Use
  Company Number: JP-Eisai-202200818_LEN-EC_P_1

PATIENT
  Sex: Female
  Weight: 40 kg

DRUGS (4)
  1. LENVIMA [Suspect]
     Active Substance: LENVATINIB
     Indication: Endometrial cancer
     Route: 048
     Dates: start: 20220325, end: 20220404
  2. LENVIMA [Suspect]
     Active Substance: LENVATINIB
     Route: 048
     Dates: start: 202204
  3. KEYTRUDA [Concomitant]
     Active Substance: PEMBROLIZUMAB
     Indication: Endometrial cancer
     Dosage: DOSE AND FREQUENCY UNKNOWN
     Route: 041
  4. CILNIDIPINE [Concomitant]
     Active Substance: CILNIDIPINE
     Indication: Hypertension
     Route: 065
     Dates: start: 20220401

REACTIONS (3)
  - Hypertension [Recovering/Resolving]
  - Weight decreased [Unknown]
  - Tumour pain [Unknown]

NARRATIVE: CASE EVENT DATE: 20220101
